FAERS Safety Report 8025944-3 (Version None)
Quarter: 2012Q1

REPORT INFORMATION
  Report Type: 
  Country: None (occurrence: None)
  Receive Date: 20120105
  Receipt Date: 20110923
  Transmission Date: 20120608
  Serious: No
  Sender: FDA-Public Use
  Company Number: US-ABBOTT-11P-163-0857308-00

PATIENT
  Age: 64 Year
  Sex: Female

DRUGS (5)
  1. VIIBRYD [Interacting]
     Indication: DEPRESSION
     Route: 048
     Dates: start: 20110720, end: 20110726
  2. VIIBRYD [Interacting]
     Route: 048
     Dates: start: 20110803, end: 20110823
  3. SYNTHROID [Suspect]
     Indication: HYPOTHYROIDISM
  4. VIIBRYD [Interacting]
     Route: 048
     Dates: start: 20110824
  5. VITAMIN D [Concomitant]
     Indication: PRODUCT USED FOR UNKNOWN INDICATION

REACTIONS (3)
  - DRUG INTERACTION [None]
  - TREMOR [None]
  - FATIGUE [None]
